FAERS Safety Report 15120875 (Version 1)
Quarter: 2018Q3

REPORT INFORMATION
  Report Type: Spontaneous
  Country: US (occurrence: US)
  Receive Date: 20180613
  Receipt Date: 20180613
  Transmission Date: 20181010
  Serious: Yes (Hospitalization)
  Sender: FDA-Public Use
  Company Number: None

PATIENT
  Age: 34 Year
  Sex: Male
  Weight: 108.86 kg

DRUGS (1)
  1. PRAMIPEXOLE. [Suspect]
     Active Substance: PRAMIPEXOLE
     Indication: DEPRESSION
     Route: 048
     Dates: start: 20170816, end: 20171023

REACTIONS (2)
  - Psychotic disorder [None]
  - Hallucination, auditory [None]

NARRATIVE: CASE EVENT DATE: 20171023
